FAERS Safety Report 8600371 (Version 2)
Quarter: 2012Q4

REPORT INFORMATION
  Report Type: Spontaneous
  Country: US (occurrence: None)
  Receive Date: 20120524
  Receipt Date: 20120912
  Transmission Date: 20130627
  Serious: Yes (Hospitalization, Other)
  Sender: FDA-Public Use
  Company Number: DSA_57333_2012

PATIENT
  Sex: Male
  Weight: 78.9 kg

DRUGS (55)
  1. ELIDEL [Suspect]
     Indication: ECZEMA
     Route: 061
     Dates: start: 20050317
  2. PROTOPIC [Suspect]
     Indication: ECZEMA
     Dosage: (DF)
  3. DOCUSATE SODIUM [Suspect]
     Route: 048
  4. ZYRTEC [Concomitant]
  5. AMBIEN [Concomitant]
  6. SUDAFED 12 HOUR [Concomitant]
  7. OXYCODONE HYDROCHLORIDE [Concomitant]
  8. OXYCODONE HYDROCHLORIDE [Concomitant]
  9. XANAX [Concomitant]
  10. KLONOPIN [Concomitant]
  11. NEXIUM [Concomitant]
  12. MOXIFLOXACIN [Concomitant]
  13. ZOFRAN [Concomitant]
  14. VALTREX [Concomitant]
  15. ACETAMINOPHEN [Concomitant]
  16. ATIVAN [Concomitant]
  17. FAMOTIDINE [Concomitant]
  18. SENNA /00142201/ [Concomitant]
  19. PROAIR /00972202/ [Concomitant]
  20. VICODIN [Concomitant]
  21. FLEXERIL [Concomitant]
  22. ADVAIR DISKUS [Concomitant]
  23. PROCARBAZINE HYDROCHLORIDE [Concomitant]
  24. KYTRIL [Concomitant]
  25. ARANESP [Concomitant]
  26. CYTOXAN [Concomitant]
  27. ADRIAMYCIN [Concomitant]
  28. PREDNISONE [Concomitant]
  29. ETOPOSIDE [Concomitant]
  30. BLEOMYCIN SULFATE [Concomitant]
  31. VINCRISTINE SULFATE [Concomitant]
  32. DECADRON [Concomitant]
  33. MESNA [Concomitant]
  34. CARBOPLATIN W/ETOPOSIDE/IFOSFAMIDE [Concomitant]
  35. ASPIRIN [Concomitant]
  36. PEPCID [Concomitant]
  37. NEULASTA [Concomitant]
  38. OXYCONTIN [Concomitant]
  39. ZANTAC [Concomitant]
  40. IBUPROFEN [Concomitant]
  41. ALBUTEROL [Concomitant]
  42. DIPHENHYDRAMINE HYDROCHLORIDE [Concomitant]
  43. HEPARIN [Concomitant]
  44. PRAMOXINE HYDROCHLORIDE [Concomitant]
  45. EPINEPHRINE [Concomitant]
  46. CAMPHOR [Concomitant]
  47. MAGNESIUM SULFATE [Concomitant]
  48. MINERAL OIL EMULSION [Concomitant]
  49. SODIUM PHOSPHATE [Concomitant]
  50. POTASSIUM CHLORIDE [Concomitant]
  51. MULTIVITAMINS [Concomitant]
  52. LASIX [Concomitant]
  53. CYTOSAR-U [Concomitant]
  54. ALKERAN [Concomitant]
  55. SODIUM CHLORIDE [Concomitant]

REACTIONS (34)
  - Hodgkin^s disease [None]
  - Economic problem [None]
  - Anaemia [None]
  - Anxiety [None]
  - Thyroiditis [None]
  - Upper respiratory tract infection [None]
  - Bronchitis [None]
  - Sinusitis [None]
  - Pilonidal cyst [None]
  - Fatigue [None]
  - Palpitations [None]
  - Dizziness [None]
  - Syncope [None]
  - Fall [None]
  - Headache [None]
  - Nausea [None]
  - Vomiting [None]
  - Laceration [None]
  - Drug abuse [None]
  - Night sweats [None]
  - Pyrexia [None]
  - Lymphadenopathy [None]
  - Oropharyngeal pain [None]
  - Oral disorder [None]
  - Pain [None]
  - Febrile neutropenia [None]
  - Stem cell transplant [None]
  - Jaundice [None]
  - White blood cell count increased [None]
  - Alanine aminotransferase increased [None]
  - Aspartate aminotransferase increased [None]
  - Eosinophilia [None]
  - Musculoskeletal pain [None]
  - Road traffic accident [None]
